FAERS Safety Report 9703667 (Version 2)
Quarter: 2014Q1

REPORT INFORMATION
  Report Type: Spontaneous
  Country: GB (occurrence: GB)
  Receive Date: 20131122
  Receipt Date: 20140213
  Transmission Date: 20141002
  Serious: Yes (Hospitalization)
  Sender: FDA-Public Use
  Company Number: GB-RANBAXY-2013R1-75275

PATIENT
  Age: 71 Year
  Sex: Female

DRUGS (10)
  1. CITALOPRAM [Suspect]
     Indication: DEPRESSION
     Dosage: 20 MG, QD
     Route: 048
     Dates: start: 20131004, end: 20131030
  2. ENALAPRIL [Suspect]
     Indication: PRODUCT USED FOR UNKNOWN INDICATION
     Route: 065
  3. OMEPRAZOLE [Suspect]
     Indication: PRODUCT USED FOR UNKNOWN INDICATION
     Dosage: 20 MG, QD
     Route: 048
  4. BENDROFLUMETHIAZIDE [Suspect]
     Indication: PRODUCT USED FOR UNKNOWN INDICATION
     Dosage: UNK
     Route: 065
  5. DOMPERIDONE [Concomitant]
     Indication: ABDOMINAL DISTENSION
     Dosage: 10 MG, TID
     Route: 048
  6. LANSOPRAZOLE [Concomitant]
     Indication: PRODUCT USED FOR UNKNOWN INDICATION
     Dosage: UNK
     Route: 065
  7. LANSOPRAZOLE [Concomitant]
     Dosage: RECENTLY DISCONTINUED AND SWITCHED TO OMEPRAZOLE.
  8. LEVOTHYROXINE [Concomitant]
     Indication: PRODUCT USED FOR UNKNOWN INDICATION
     Dosage: 100 ?G, QD
     Route: 048
  9. ORAMORPH [Concomitant]
     Indication: PRODUCT USED FOR UNKNOWN INDICATION
     Dosage: 5 MG, PRN
     Route: 048
  10. ORAMORPH [Concomitant]
     Route: 048

REACTIONS (4)
  - Diarrhoea [Unknown]
  - Hypokalaemia [Unknown]
  - Hallucination [Unknown]
  - Hyponatraemia [Recovering/Resolving]
